FAERS Safety Report 11889074 (Version 1)
Quarter: 2016Q1

REPORT INFORMATION
  Report Type: Spontaneous
  Country: US (occurrence: None)
  Receive Date: 20160104
  Receipt Date: 20160104
  Transmission Date: 20160526
  Serious: No
  Sender: FDA-Public Use
  Company Number: None

PATIENT
  Age: 57 Year
  Sex: Male

DRUGS (4)
  1. HUMALOG [Suspect]
     Active Substance: INSULIN LISPRO
  2. GLIPIZIDE. [Concomitant]
     Active Substance: GLIPIZIDE
  3. TOUJEO [Concomitant]
     Active Substance: INSULIN GLARGINE
  4. METFORMIN [Suspect]
     Active Substance: METFORMIN HYDROCHLORIDE

REACTIONS (7)
  - Injection site bruising [None]
  - Laceration [None]
  - Nail injury [None]
  - Limb injury [None]
  - Intentional product misuse [None]
  - Skin fissures [None]
  - Injection site haemorrhage [None]
